FAERS Safety Report 6209968-4 (Version None)
Quarter: 2009Q2

REPORT INFORMATION
  Report Type: 
  Country: None (occurrence: None)
  Receive Date: 20090601
  Receipt Date: 20090525
  Transmission Date: 20091009
  Serious: Yes (Hospitalization)
  Sender: FDA-Public Use
  Company Number: DE-PFIZER INC-2009188118

PATIENT
  Age: 58 Year

DRUGS (10)
  1. REVATIO [Suspect]
     Indication: PULMONARY HYPERTENSION
     Dosage: 20 MG, 2X/DAY
     Route: 048
     Dates: start: 20081224, end: 20090106
  2. REVATIO [Suspect]
     Dosage: 20 MG, 1X/DAY
     Route: 048
     Dates: start: 20081216, end: 20081223
  3. ASPIRIN [Concomitant]
     Indication: PROPHYLAXIS
     Dosage: 100 MG, 1X/DAY
     Route: 048
     Dates: start: 20050101
  4. BLOPRESS [Concomitant]
     Indication: HYPERTENSION
     Dosage: 16 MG, 2X/DAY
     Route: 048
     Dates: start: 20050101
  5. DISALUNIL [Concomitant]
     Indication: HYPERTENSION
     Dosage: 25 MG, 1X/DAY
     Route: 048
     Dates: start: 20050101
  6. NORVASC [Concomitant]
     Indication: HYPERTENSION
     Dosage: 5 MG, 2X/DAY
     Route: 048
     Dates: start: 20050101
  7. PANTOZOL [Concomitant]
     Indication: PROPHYLAXIS AGAINST GASTROINTESTINAL ULCER
     Dosage: 20 MG, 2X/DAY
     Route: 048
     Dates: start: 20070101
  8. SIMVASTATIN [Concomitant]
     Indication: PROPHYLAXIS
     Dosage: 20 MG, 1X/DAY
     Route: 048
     Dates: start: 20050101
  9. URBASON [Concomitant]
     Indication: SYSTEMIC SCLEROSIS
     Dosage: 56 MG, 1X/DAY
     Route: 048
     Dates: start: 20081218
  10. VIANI [Concomitant]
     Indication: DYSPNOEA
     Dosage: UNK
     Route: 055
     Dates: start: 20081218

REACTIONS (1)
  - ANGINA PECTORIS [None]
